FAERS Safety Report 11895815 (Version 1)
Quarter: 2016Q1

REPORT INFORMATION
  Report Type: Spontaneous
  Country: US (occurrence: US)
  Receive Date: 20160107
  Receipt Date: 20160107
  Transmission Date: 20160526
  Serious: No
  Sender: FDA-Public Use
  Company Number: ALCN2015US007997

PATIENT
  Age: 74 Year
  Sex: Male

DRUGS (3)
  1. REFRESH P.M. [Concomitant]
     Active Substance: MINERAL OIL\PETROLATUM
     Indication: PRODUCT USED FOR UNKNOWN INDICATION
     Dosage: UNK
     Route: 047
  2. SYSTANE NIGHTTIME [Suspect]
     Active Substance: MINERAL OIL\PETROLATUM
     Indication: DRY EYE
     Dosage: UNK
     Route: 047
     Dates: start: 20151122
  3. LACRI-LUBE [Concomitant]
     Indication: PRODUCT USED FOR UNKNOWN INDICATION
     Dosage: UNK
     Route: 047

REACTIONS (5)
  - Swelling face [Recovering/Resolving]
  - Erythema [Recovering/Resolving]
  - Ocular hyperaemia [Not Recovered/Not Resolved]
  - Facial pain [Recovered/Resolved]
  - Superficial injury of eye [Recovering/Resolving]

NARRATIVE: CASE EVENT DATE: 20151217
